FAERS Safety Report 6081030-3 (Version None)
Quarter: 2009Q1

REPORT INFORMATION
  Report Type: 
  Country: None (occurrence: None)
  Receive Date: 20090217
  Receipt Date: 20090209
  Transmission Date: 20090719
  Serious: Yes (Other)
  Sender: FDA-Public Use
  Company Number: PHEH2007US15186

PATIENT
  Sex: Female

DRUGS (4)
  1. ZOMETA [Suspect]
     Indication: NEOPLASM MALIGNANT
  2. PERIDEX [Concomitant]
  3. ANTINEOPLASTIC AGENTS [Concomitant]
  4. BOTOX [Concomitant]
     Dosage: UNK
     Dates: start: 20010101

REACTIONS (32)
  - ANAEMIA [None]
  - ANHEDONIA [None]
  - ANXIETY [None]
  - BONE DISORDER [None]
  - BREAST CANCER METASTATIC [None]
  - CHRONIC SINUSITIS [None]
  - DEFORMITY [None]
  - DENTAL CARIES [None]
  - DEPRESSION [None]
  - DYSGEUSIA [None]
  - EMOTIONAL DISTRESS [None]
  - ENDODONTIC PROCEDURE [None]
  - ERYTHEMA [None]
  - HYPOAESTHESIA ORAL [None]
  - HYPOPHAGIA [None]
  - JAW DISORDER [None]
  - MASS [None]
  - METASTASES TO BONE [None]
  - METASTASES TO LIVER [None]
  - METASTASES TO LUNG [None]
  - MYOFASCIAL PAIN SYNDROME [None]
  - OSTEONECROSIS [None]
  - OSTEORADIONECROSIS [None]
  - PAIN [None]
  - PERIODONTAL DISEASE [None]
  - SENSORY DISTURBANCE [None]
  - TESTICULAR SWELLING [None]
  - TOOTH ABSCESS [None]
  - TOOTH DISORDER [None]
  - TOOTH EXTRACTION [None]
  - TOOTH REPAIR [None]
  - TOOTHACHE [None]
